FAERS Safety Report 11506574 (Version 1)
Quarter: 2015Q3

REPORT INFORMATION
  Report Type: Spontaneous
  Country: US (occurrence: None)
  Receive Date: 20150914
  Receipt Date: 20150914
  Transmission Date: 20151125
  Serious: Yes (Other)
  Sender: FDA-Public Use
  Company Number: None

PATIENT
  Age: 45 Year
  Sex: Male
  Weight: 113.4 kg

DRUGS (7)
  1. LOPRESSOR [Concomitant]
     Active Substance: METOPROLOL TARTRATE
  2. TYLENOL [Concomitant]
     Active Substance: ACETAMINOPHEN
  3. INVOKANA [Suspect]
     Active Substance: CANAGLIFLOZIN
     Indication: BLOOD GLUCOSE INCREASED
     Dosage: SAMPLES FROM DOCTOR
     Route: 048
     Dates: start: 20150811, end: 20150909
  4. INVOKANA [Suspect]
     Active Substance: CANAGLIFLOZIN
     Indication: GLYCOSYLATED HAEMOGLOBIN INCREASED
     Dosage: SAMPLES FROM DOCTOR
     Route: 048
     Dates: start: 20150811, end: 20150909
  5. COZAAR [Concomitant]
     Active Substance: LOSARTAN POTASSIUM
  6. ADVIL [Concomitant]
     Active Substance: IBUPROFEN
  7. NORVASC [Concomitant]
     Active Substance: AMLODIPINE BESYLATE

REACTIONS (2)
  - Swelling face [None]
  - Urticaria [None]

NARRATIVE: CASE EVENT DATE: 20150909
